FAERS Safety Report 7315464-3 (Version None)
Quarter: 2011Q1

REPORT INFORMATION
  Report Type: 
  Country: None (occurrence: None)
  Receive Date: 20110218
  Receipt Date: 20110218
  Transmission Date: 20110831
  Serious: Yes (Hospitalization)
  Sender: FDA-Public Use
  Company Number: None

PATIENT
  Age: 53 Year
  Sex: Female

DRUGS (11)
  1. CLOZARIL [Suspect]
     Indication: SCHIZOAFFECTIVE DISORDER
     Dosage: 100 MG QAM PO CHRONIC
     Route: 048
  2. CLOZARIL [Suspect]
     Dosage: 200 MG QHS PO
     Route: 048
  3. ZOCOR [Concomitant]
  4. ATIVAN [Concomitant]
  5. PERCOCET [Concomitant]
  6. LOC [Concomitant]
  7. TYLENOL [Concomitant]
  8. FERROUS SULFATE TAB [Concomitant]
  9. LAMICTAL [Concomitant]
  10. DILANTIN [Concomitant]
  11. LOVENOX [Concomitant]

REACTIONS (2)
  - NEUROLEPTIC MALIGNANT SYNDROME [None]
  - INFECTION [None]
